FAERS Safety Report 25571420 (Version 1)
Quarter: 2025Q3

REPORT INFORMATION
  Report Type: Spontaneous
  Country: JP (occurrence: JP)
  Receive Date: 20250717
  Receipt Date: 20250717
  Transmission Date: 20251020
  Serious: Yes (Hospitalization, Other)
  Sender: RANBAXY
  Company Number: JP-SUN PHARMACEUTICAL INDUSTRIES INC-2025R1-516992

PATIENT
  Sex: Male

DRUGS (1)
  1. METHOTREXATE [Suspect]
     Active Substance: METHOTREXATE
     Indication: Rheumatoid arthritis
     Dosage: 4 MILLIGRAM, WEEKLY
     Route: 065

REACTIONS (4)
  - Acute kidney injury [Recovering/Resolving]
  - Angioimmunoblastic T-cell lymphoma [Recovering/Resolving]
  - Oliguria [Recovering/Resolving]
  - Thrombocytopenia [Recovering/Resolving]
